FAERS Safety Report 25502940 (Version 1)
Quarter: 2025Q3

REPORT INFORMATION
  Report Type: Spontaneous
  Country: QA (occurrence: QA)
  Receive Date: 20250702
  Receipt Date: 20250702
  Transmission Date: 20251021
  Serious: Yes (Hospitalization)
  Sender: Norvium Bioscience
  Company Number: QA-Norvium Bioscience LLC-080334

PATIENT
  Age: 53 Year
  Sex: Male

DRUGS (3)
  1. TIZANIDINE HYDROCHLORIDE [Interacting]
     Active Substance: TIZANIDINE HYDROCHLORIDE
     Indication: Pain management
     Route: 048
  2. NIFEDIPINE [Interacting]
     Active Substance: NIFEDIPINE
     Indication: Hypertension
     Route: 048
  3. ONDANSETRON [Concomitant]
     Active Substance: ONDANSETRON
     Indication: Product used for unknown indication
     Route: 042

REACTIONS (3)
  - Drug interaction [Unknown]
  - Dizziness [Recovered/Resolved]
  - Blood pressure decreased [Recovered/Resolved]
